FAERS Safety Report 7163767-8 (Version None)
Quarter: 2010Q4

REPORT INFORMATION
  Report Type: 
  Country: None (occurrence: None)
  Receive Date: 20101215
  Receipt Date: 20100611
  Transmission Date: 20110411
  Serious: Yes (Other)
  Sender: FDA-Public Use
  Company Number: AU-PFIZER INC-2010073095

PATIENT
  Sex: Female

DRUGS (2)
  1. LYRICA [Suspect]
     Indication: NEUROPATHY PERIPHERAL
     Dosage: UNK
  2. RAMIPRIL [Interacting]
     Indication: BLOOD PRESSURE
     Dosage: UNK

REACTIONS (2)
  - DRUG INTERACTION [None]
  - NEURALGIA [None]
